FAERS Safety Report 13677097 (Version 1)
Quarter: 2017Q2

REPORT INFORMATION
  Report Type: Report from Study
  Country: US (occurrence: US)
  Receive Date: 20170622
  Receipt Date: 20170622
  Transmission Date: 20170830
  Serious: Yes (Other)
  Sender: FDA-Public Use
  Company Number: US-NAPPMUNDI-USA-2017-0139492

PATIENT
  Sex: Female

DRUGS (2)
  1. PROPOFOL. [Concomitant]
     Active Substance: PROPOFOL
     Indication: PRODUCT USED FOR UNKNOWN INDICATION
     Dosage: UNK
     Route: 065
  2. BUPRENORPHINE. [Suspect]
     Active Substance: BUPRENORPHINE
     Indication: TRIGEMINAL NEURALGIA
     Dosage: 20 MCG/HR, WEEKLY
     Route: 062

REACTIONS (2)
  - Gallbladder operation [Unknown]
  - Trigeminal neuralgia [Unknown]
